FAERS Safety Report 19623003 (Version 2)
Quarter: 2021Q3

REPORT INFORMATION
  Report Type: Report from Study
  Country: NL (occurrence: NL)
  Receive Date: 20210728
  Receipt Date: 20210804
  Transmission Date: 20211014
  Serious: Yes (Hospitalization)
  Sender: FDA-Public Use
  Company Number: NL-ROCHE-2866579

PATIENT
  Age: 79 Year
  Sex: Male

DRUGS (2)
  1. OBINUTUZUMAB. [Suspect]
     Active Substance: OBINUTUZUMAB
     Indication: CHRONIC LYMPHOCYTIC LEUKAEMIA
     Dosage: THE LAST DOSE OF OBINUTUZUMAB WAS 100 MG ON 06/JUL/2021?CYCLE 1
     Route: 042
     Dates: start: 20210706
  2. SIMVASTATIN. [Concomitant]
     Active Substance: SIMVASTATIN

REACTIONS (1)
  - Blood lactate dehydrogenase increased [Recovered/Resolved with Sequelae]

NARRATIVE: CASE EVENT DATE: 20210706
